FAERS Safety Report 16058852 (Version 1)
Quarter: 2019Q1

REPORT INFORMATION
  Report Type: Spontaneous
  Country: US (occurrence: US)
  Receive Date: 20190311
  Receipt Date: 20190311
  Transmission Date: 20190418
  Serious: No
  Sender: FDA-Public Use
  Company Number: US-ELI_LILLY_AND_COMPANY-US201902012197

PATIENT

DRUGS (2)
  1. TALTZ [Suspect]
     Active Substance: IXEKIZUMAB
     Dosage: 80 MG, 2/M
     Route: 065
  2. TALTZ [Suspect]
     Active Substance: IXEKIZUMAB
     Indication: PRODUCT USED FOR UNKNOWN INDICATION
     Dosage: 160 MG, SINGLE
     Route: 065

REACTIONS (1)
  - Dermatitis allergic [Unknown]

NARRATIVE: CASE EVENT DATE: 20190222
